FAERS Safety Report 14294946 (Version 1)
Quarter: 2017Q4

REPORT INFORMATION
  Report Type: Spontaneous
  Country: FR (occurrence: FR)
  Receive Date: 20171218
  Receipt Date: 20171218
  Transmission Date: 20180321
  Serious: Yes (Other)
  Sender: FDA-Public Use
  Company Number: FR-MERCK KGAA-2037267

PATIENT
  Age: 73 Year
  Sex: Female

DRUGS (2)
  1. NOVOTHYROX [Suspect]
     Active Substance: LEVOTHYROXINE SODIUM
     Indication: HYPOTHYROIDISM
     Dates: start: 201706
  2. NOVOTHYROX [Suspect]
     Active Substance: LEVOTHYROXINE SODIUM

REACTIONS (8)
  - Gastrointestinal disorder [None]
  - Adverse event [None]
  - Headache [None]
  - Vertigo [None]
  - Crying [None]
  - Hyperthyroidism [None]
  - Nervousness [None]
  - Insomnia [None]

NARRATIVE: CASE EVENT DATE: 2017
